FAERS Safety Report 15667208 (Version 2)
Quarter: 2021Q2

REPORT INFORMATION
  Report Type: Spontaneous
  Country: US (occurrence: US)
  Receive Date: 20181128
  Receipt Date: 20210602
  Transmission Date: 20210716
  Serious: No
  Sender: FDA-Public Use
  Company Number: US-ROCHE-2117467

PATIENT
  Age: 67 Year
  Sex: Female
  Weight: 90.8 kg

DRUGS (6)
  1. BENADRYL [Concomitant]
     Active Substance: DIPHENHYDRAMINE HYDROCHLORIDE
     Dosage: PRETREATMENT ;ONGOING: YES
     Route: 040
     Dates: start: 20180425
  2. SOLU?MEDROL [Concomitant]
     Active Substance: METHYLPREDNISOLONE SODIUM SUCCINATE
     Dosage: PRETREATMENT ;ONGOING: YES
     Route: 042
     Dates: start: 20180425
  3. TYLENOL [Concomitant]
     Active Substance: ACETAMINOPHEN
     Dosage: PRETREATMENT 2 REGULAR STRENGTH ;ONGOING: YES
     Route: 048
     Dates: start: 20180425
  4. OCREVUS [Suspect]
     Active Substance: OCRELIZUMAB
     Indication: MULTIPLE SCLEROSIS
     Dosage: ONGOING: YES
     Route: 042
     Dates: start: 20180425
  5. MYRBETRIC [Concomitant]
     Active Substance: MIRABEGRON
     Dosage: YES
     Route: 048
     Dates: start: 201803
  6. MODAFINIL. [Concomitant]
     Active Substance: MODAFINIL
     Indication: FATIGUE
     Dosage: STARTED MORE THAN 5 YEARS AGO BUT NOT MORE THAN 10 ;ONGOING: YES
     Route: 048

REACTIONS (7)
  - Bladder pain [Recovered/Resolved]
  - Bladder discomfort [Recovered/Resolved]
  - Somnolence [Recovered/Resolved]
  - Sensory disturbance [Recovered/Resolved]
  - Pollakiuria [Recovered/Resolved]
  - Blood pressure decreased [Recovered/Resolved]
  - Bladder spasm [Recovered/Resolved]

NARRATIVE: CASE EVENT DATE: 20180425
